FAERS Safety Report 5669721-7 (Version None)
Quarter: 2008Q1

REPORT INFORMATION
  Report Type: 
  Country: None (occurrence: None)
  Receive Date: 20080313
  Receipt Date: 20080313
  Transmission Date: 20080703
  Serious: Yes (Life-Threatening, Hospitalization, Other)
  Sender: FDA-Public Use
  Company Number: None

PATIENT
  Age: 46 Year
  Sex: Male
  Weight: 86.6 kg

DRUGS (1)
  1. HURRICAINE SPRAY [Suspect]
     Indication: ENDOTRACHEAL INTUBATION
     Dosage: ^SPRAYS^ -  DURING SURGERY ENDOTRACHEA
     Route: 007
     Dates: start: 20080220, end: 20080220

REACTIONS (3)
  - HYPOXIA [None]
  - PROCEDURAL COMPLICATION [None]
  - TACHYCARDIA [None]
